FAERS Safety Report 10435052 (Version 1)
Quarter: 2014Q2

REPORT INFORMATION
  Report Type: Spontaneous
  Country: US (occurrence: None)
  Receive Date: 20140618
  Receipt Date: 20140618
  Transmission Date: 20141212
  Serious: Yes (Hospitalization, Other)
  Sender: FDA-Public Use
  Company Number: 100018U

PATIENT
  Sex: Male

DRUGS (6)
  1. LACOSAMIDE [Suspect]
     Indication: CONVULSION
     Dates: start: 2012
  2. KEPPRA [Suspect]
     Dates: start: 2012
  3. DILANTIN [Concomitant]
  4. LISINOPRIL [Concomitant]
  5. LOVASTATIN [Concomitant]
  6. CRESTOR [Concomitant]

REACTIONS (2)
  - Convulsion [None]
  - Unevaluable event [None]
